FAERS Safety Report 17112965 (Version 1)
Quarter: 2019Q4

REPORT INFORMATION
  Report Type: Spontaneous
  Country: AU (occurrence: AU)
  Receive Date: 20191204
  Receipt Date: 20191204
  Transmission Date: 20200122
  Serious: Yes (Other)
  Sender: FDA-Public Use
  Company Number: AU-BAUSCH-BL-2019-063800

PATIENT
  Sex: Female
  Weight: 56 kg

DRUGS (1)
  1. EFUDIX [Suspect]
     Active Substance: FLUOROURACIL
     Indication: PRODUCT USED FOR UNKNOWN INDICATION
     Route: 065
     Dates: start: 20190812, end: 201909

REACTIONS (4)
  - Ventricular fibrillation [Unknown]
  - Alopecia [Unknown]
  - Drug ineffective [Unknown]
  - Extrasystoles [Unknown]

NARRATIVE: CASE EVENT DATE: 2019
